FAERS Safety Report 10503538 (Version 1)
Quarter: 2014Q4

REPORT INFORMATION
  Report Type: Spontaneous
  Country: SE (occurrence: SE)
  Receive Date: 20141008
  Receipt Date: 20141008
  Transmission Date: 20150528
  Serious: Yes (Other)
  Sender: FDA-Public Use
  Company Number: SE-JNJFOC-20140923436

PATIENT
  Age: 36 Year
  Sex: Male

DRUGS (1)
  1. IPREN [Suspect]
     Active Substance: IBUPROFEN
     Indication: HEADACHE
     Dosage: 2 TABLETS BEFORE LUNCH AND 2 TABLETS AFTER LUNCH
     Route: 065
     Dates: start: 20140910, end: 20140910

REACTIONS (3)
  - Skin reaction [Unknown]
  - Pruritus [Unknown]
  - Throat tightness [Unknown]

NARRATIVE: CASE EVENT DATE: 20140910
